FAERS Safety Report 25958399 (Version 1)
Quarter: 2025Q4

REPORT INFORMATION
  Report Type: Spontaneous
  Country: US (occurrence: US)
  Receive Date: 20251024
  Receipt Date: 20251024
  Transmission Date: 20260117
  Serious: No
  Sender: ARMSTRONG PHARMACEUTICALS, INC.
  Company Number: US-Armstrong Pharmaceuticals, Inc.-2187253

PATIENT
  Age: 58 Year
  Sex: Female

DRUGS (1)
  1. PRIMATENE MIST [Suspect]
     Active Substance: EPINEPHRINE

REACTIONS (2)
  - Burning sensation [Recovered/Resolved]
  - Wheezing [Recovered/Resolved]

NARRATIVE: CASE EVENT DATE: 20250630
